FAERS Safety Report 6444851-0 (Version None)
Quarter: 2009Q4

REPORT INFORMATION
  Report Type: 
  Country: None (occurrence: None)
  Receive Date: 20091118
  Receipt Date: 20091113
  Transmission Date: 20100525
  Serious: Yes (Hospitalization)
  Sender: FDA-Public Use
  Company Number: PHHY2009TR50277

PATIENT
  Age: 27 Year
  Sex: Female
  Weight: 50 kg

DRUGS (1)
  1. PARLODEL [Suspect]
     Indication: INFERTILITY
     Dosage: UNK
     Route: 048
     Dates: start: 20091001

REACTIONS (6)
  - EYE PAIN [None]
  - GROIN PAIN [None]
  - HEADACHE [None]
  - LOSS OF CONSCIOUSNESS [None]
  - PARAESTHESIA [None]
  - SWELLING [None]
